FAERS Safety Report 23152286 (Version 2)
Quarter: 2024Q3

REPORT INFORMATION
  Report Type: Spontaneous
  Country: BE (occurrence: BE)
  Receive Date: 20231107
  Receipt Date: 20240726
  Transmission Date: 20241016
  Serious: Yes (Other)
  Sender: GLAXOSMITHKLINE
  Company Number: BE-GLAXOSMITHKLINE-BE2023EME152474

PATIENT

DRUGS (2)
  1. NUCALA [Suspect]
     Active Substance: MEPOLIZUMAB
     Indication: Chronic rhinosinusitis with nasal polyps
     Dosage: 100 MG, Q4W
     Route: 058
     Dates: start: 20230731
  2. NUCALA [Suspect]
     Active Substance: MEPOLIZUMAB
     Dosage: 100 MG, MO
     Route: 058

REACTIONS (7)
  - Angina pectoris [Recovering/Resolving]
  - Abdominal pain [Recovering/Resolving]
  - Poor quality sleep [Recovered/Resolved]
  - Chest discomfort [Recovered/Resolved]
  - Ear disorder [Recovered/Resolved]
  - Nasal disorder [Recovered/Resolved]
  - Dyspnoea [Recovered/Resolved]
